FAERS Safety Report 7561593-9 (Version None)
Quarter: 2011Q2

REPORT INFORMATION
  Report Type: 
  Country: None (occurrence: None)
  Receive Date: 20110621
  Receipt Date: 20100716
  Transmission Date: 20111010
  Serious: No
  Sender: FDA-Public Use
  Company Number: US-ASTRAZENECA-2010SE33355

PATIENT
  Age: 75 Year
  Sex: Female
  Weight: 67.1 kg

DRUGS (7)
  1. LASIX [Concomitant]
  2. DIGOXIN [Concomitant]
  3. COUMADIN [Concomitant]
  4. PULMICORT [Concomitant]
     Indication: CHRONIC OBSTRUCTIVE PULMONARY DISEASE
  5. FOMOTIDINE [Concomitant]
  6. BUDESONIDE [Suspect]
     Route: 055
  7. POTASSIUM [Concomitant]

REACTIONS (1)
  - DYSPNOEA [None]
